FAERS Safety Report 8426797-1 (Version None)
Quarter: 2012Q2

REPORT INFORMATION
  Report Type: 
  Country: None (occurrence: None)
  Receive Date: 20120611
  Receipt Date: 20111220
  Transmission Date: 20120825
  Serious: No
  Sender: FDA-Public Use
  Company Number: US-ASTRAZENECA-2011SE77414

PATIENT
  Age: 6 Year
  Sex: Male
  Weight: 39.5 kg

DRUGS (1)
  1. PULMICORT FLEXHALER [Suspect]
     Indication: ASTHMA
     Dosage: 180 MCG ONE PUFF EVERY 12 HOURS
     Route: 055

REACTIONS (1)
  - EAR PAIN [None]
